FAERS Safety Report 5358070-2 (Version None)
Quarter: 2007Q2

REPORT INFORMATION
  Report Type: 
  Country: None (occurrence: None)
  Receive Date: 20070530
  Receipt Date: 20061101
  Transmission Date: 20071010
  Serious: Yes (Hospitalization)
  Sender: FDA-Public Use
  Company Number: US200611000179

PATIENT

DRUGS (4)
  1. ZYPREXA [Suspect]
     Indication: AGITATION
     Dosage: SEE IMAGE
     Dates: start: 20041020, end: 20041027
  2. ZYPREXA [Suspect]
     Indication: AGITATION
     Dosage: SEE IMAGE
     Dates: start: 20041027, end: 20041028
  3. SEROQUEL [Concomitant]
  4. ABILIFY [Concomitant]

REACTIONS (4)
  - DIABETES MELLITUS NON-INSULIN-DEPENDENT [None]
  - POLLAKIURIA [None]
  - POLYDIPSIA [None]
  - VISION BLURRED [None]
